FAERS Safety Report 9162357 (Version 1)
Quarter: 2013Q1

REPORT INFORMATION
  Report Type: Spontaneous
  Country: US (occurrence: US)
  Receive Date: 20130314
  Receipt Date: 20130314
  Transmission Date: 20140127
  Serious: No
  Sender: FDA-Public Use
  Company Number: US-PFIZER INC-2013083163

PATIENT
  Age: 85 Year
  Sex: Female
  Weight: 59.86 kg

DRUGS (7)
  1. XALKORI [Suspect]
     Dosage: 250 MG, 2X/DAY
     Route: 048
  2. AMLODIPINE [Concomitant]
     Dosage: 10 MG, UNK
  3. ZOMETA [Concomitant]
     Dosage: 4MG/5ML
  4. LOSARTAN POTASSIUM W/HYDROCHLOROTHIAZIDE [Concomitant]
     Dosage: 50-12.5
  5. AMLODIPINE BESILATE/BENAZEPRIL HYDROCHLORIDE [Concomitant]
     Dosage: 10 MG, UNK
  6. AMLODIPINE BESILATE/BENAZEPRIL HYDROCHLORIDE [Concomitant]
     Dosage: 20 MG, UNK
  7. ARICEPT [Concomitant]
     Dosage: 5 MG, UNK

REACTIONS (2)
  - Asthenia [Unknown]
  - Fatigue [Unknown]
